FAERS Safety Report 6732874-3 (Version None)
Quarter: 2010Q2

REPORT INFORMATION
  Report Type: 
  Country: None (occurrence: None)
  Receive Date: 20100519
  Receipt Date: 20100512
  Transmission Date: 20101027
  Serious: Yes (Death, Hospitalization, Other)
  Sender: FDA-Public Use
  Company Number: US-ABBOTT-10P-163-0622757-00

PATIENT
  Sex: Male
  Weight: 105.33 kg

DRUGS (3)
  1. HUMIRA [Suspect]
     Indication: CROHN'S DISEASE
     Dates: start: 20081126, end: 20091217
  2. HUMIRA [Suspect]
     Dosage: ONE DOSE
  3. HUMIRA [Suspect]
     Dosage: ONE DOSE

REACTIONS (5)
  - ABDOMINAL ABSCESS [None]
  - ABDOMINAL PAIN [None]
  - GALLBLADDER DISORDER [None]
  - INFECTION [None]
  - PANCREATIC NECROSIS [None]
